FAERS Safety Report 7703946-1 (Version None)
Quarter: 2011Q3

REPORT INFORMATION
  Report Type: 
  Country: None (occurrence: None)
  Receive Date: 20110823
  Receipt Date: 20110810
  Transmission Date: 20111222
  Serious: Yes (Hospitalization)
  Sender: FDA-Public Use
  Company Number: US-ROCHE-797666

PATIENT
  Age: 54 Year
  Sex: Male
  Weight: 80.1 kg

DRUGS (15)
  1. TYLENOL-500 [Concomitant]
     Route: 048
  2. VALIUM [Concomitant]
  3. TEMSIROLIMUS [Suspect]
     Indication: RENAL CELL CARCINOMA
     Route: 042
     Dates: start: 20100820
  4. NORVASC [Concomitant]
     Route: 048
     Dates: start: 20110422
  5. BEVACIZUMAB [Suspect]
     Indication: RENAL CELL CARCINOMA
     Route: 042
     Dates: start: 20100820
  6. ATIVAN [Concomitant]
     Indication: ANXIETY
     Dosage: AS NECESSARY
     Route: 048
     Dates: start: 20110618
  7. HYDROCODONE HCL [Concomitant]
     Dosage: AS NECESSARY
     Route: 048
  8. HYDROXYZINE HCL [Concomitant]
     Route: 048
  9. LISINOPRIL [Concomitant]
     Route: 048
     Dates: start: 20110428
  10. SIMAVASTATIN [Concomitant]
     Route: 048
     Dates: start: 20101015
  11. TRICOR [Concomitant]
     Route: 048
     Dates: start: 20110304
  12. COMPAZINE [Concomitant]
     Route: 048
  13. ZANTAC [Concomitant]
     Route: 054
     Dates: start: 20110526
  14. ZOFRAN [Concomitant]
     Indication: NAUSEA
     Dosage: AS NECESSARY
     Route: 048
     Dates: start: 20110726
  15. ULTRAM [Concomitant]
     Dosage: AS NECESSARY

REACTIONS (1)
  - APHASIA [None]
